FAERS Safety Report 6278498-6 (Version None)
Quarter: 2009Q3

REPORT INFORMATION
  Report Type: 
  Country: None (occurrence: None)
  Receive Date: 20090721
  Receipt Date: 20090707
  Transmission Date: 20100115
  Serious: Yes (Hospitalization)
  Sender: FDA-Public Use
  Company Number: 2009-02745

PATIENT
  Age: 60 Year
  Sex: Male
  Weight: 73 kg

DRUGS (7)
  1. VELCADE [Suspect]
     Indication: MULTIPLE MYELOMA
     Dosage: 1.3 MG/M2, INTRAVENOUS
     Route: 042
     Dates: start: 20081222, end: 20090305
  2. DEXAMETHASONE TAB [Suspect]
     Indication: MULTIPLE MYELOMA
     Dosage: 40 MG, ORAL
     Route: 048
     Dates: start: 20081222, end: 20090226
  3. SIMVASTATIN [Concomitant]
  4. METFORMIN HCL [Concomitant]
  5. BROMAZEPAM (BROMAZEPAM) [Concomitant]
  6. FLUCONAZOLE [Concomitant]
  7. BACTRIM [Concomitant]

REACTIONS (1)
  - DIABETES MELLITUS [None]
